FAERS Safety Report 12236862 (Version 1)
Quarter: 2016Q2

REPORT INFORMATION
  Report Type: Spontaneous
  Country: IN (occurrence: IN)
  Receive Date: 20160405
  Receipt Date: 20160405
  Transmission Date: 20160815
  Serious: Yes (Other)
  Sender: FDA-Public Use
  Company Number: IN-CIPLA-2016IN02972

PATIENT

DRUGS (2)
  1. LEVOFLOX [Suspect]
     Active Substance: LEVOFLOXACIN
     Indication: PHARYNGITIS
     Dosage: 250 MG, BID
     Dates: start: 201601
  2. LEVOFLOX [Suspect]
     Active Substance: LEVOFLOXACIN
     Indication: PYREXIA

REACTIONS (4)
  - Pruritus [Not Recovered/Not Resolved]
  - Skin infection [Not Recovered/Not Resolved]
  - Burning sensation [Not Recovered/Not Resolved]
  - Skin reaction [Not Recovered/Not Resolved]

NARRATIVE: CASE EVENT DATE: 20160201
